FAERS Safety Report 13582509 (Version 3)
Quarter: 2017Q3

REPORT INFORMATION
  Report Type: Spontaneous
  Country: TW (occurrence: TW)
  Receive Date: 20170525
  Receipt Date: 20170817
  Transmission Date: 20171127
  Serious: Yes (Other)
  Sender: FDA-Public Use
  Company Number: TW-PFIZER INC-2017230904

PATIENT
  Age: 67 Year
  Sex: Female

DRUGS (4)
  1. PLAQUENIL /00072602/ [Concomitant]
     Active Substance: HYDROXYCHLOROQUINE DIPHOSPHATE
     Dosage: 1 DF, 2X/DAY
     Route: 048
  2. METHOTREXATE (METHOTREXATE SODIUM) [Concomitant]
     Active Substance: METHOTREXATE SODIUM
     Dosage: 6 DF, WEEKLY
     Route: 048
  3. XELJANZ [Suspect]
     Active Substance: TOFACITINIB CITRATE
     Indication: RHEUMATOID ARTHRITIS
     Dosage: 5 MG, 2X/DAY
     Route: 048
     Dates: start: 20170509
  4. ARCOXIA [Concomitant]
     Active Substance: ETORICOXIB
     Dosage: 1 DF, 1X/DAY
     Route: 048

REACTIONS (2)
  - Road traffic accident [Recovering/Resolving]
  - Thoracic vertebral fracture [Recovering/Resolving]

NARRATIVE: CASE EVENT DATE: 20170518
